FAERS Safety Report 18088702 (Version 1)
Quarter: 2020Q3

REPORT INFORMATION
  Report Type: Spontaneous
  Country: IT (occurrence: IT)
  Receive Date: 20200729
  Receipt Date: 20200729
  Transmission Date: 20201103
  Serious: Yes (Death, Hospitalization, Other)
  Sender: FDA-Public Use
  Company Number: IT-GILEAD-2020-0466156

PATIENT
  Age: 57 Year
  Sex: Male

DRUGS (17)
  1. DUROGESIC [Concomitant]
     Active Substance: FENTANYL
     Indication: PAIN
     Dosage: 100 MG, QD
     Dates: end: 20200513
  2. TAZOCIN [Concomitant]
     Active Substance: PIPERACILLIN SODIUM\TAZOBACTAM SODIUM
     Dosage: UNK
     Dates: start: 20200503, end: 20200505
  3. YESCARTA [Suspect]
     Active Substance: AXICABTAGENE CILOLEUCEL
     Indication: DIFFUSE LARGE B-CELL LYMPHOMA
     Dosage: UNK
     Route: 042
     Dates: start: 20200506, end: 20200506
  4. CEFTRIAXONE. [Concomitant]
     Active Substance: CEFTRIAXONE
     Indication: CYTOKINE RELEASE SYNDROME
     Dosage: UNK
     Dates: start: 20200501, end: 20200503
  5. VANCOMYCIN [Concomitant]
     Active Substance: VANCOMYCIN
     Indication: CYTOKINE RELEASE SYNDROME
     Dosage: 500 MG QID
     Dates: start: 20200507, end: 20200510
  6. BACTRIM [Concomitant]
     Active Substance: SULFAMETHOXAZOLE\TRIMETHOPRIM
     Dosage: 960 MG, THREE TIMES WEEKLY
  7. DEXAMETHASONE. [Suspect]
     Active Substance: DEXAMETHASONE
     Indication: NEUROTOXICITY
     Dosage: 10 MG, QID
     Route: 042
     Dates: start: 20200513, end: 20200519
  8. DAPTOMYCIN. [Concomitant]
     Active Substance: DAPTOMYCIN
     Indication: PYREXIA
     Dosage: 500 MG, QD
     Dates: start: 20200512, end: 20200514
  9. ALLOPURINOLO [Concomitant]
     Active Substance: ALLOPURINOL
     Dosage: 300 MG, BID
     Dates: start: 20200429
  10. DAPTOMYCIN. [Concomitant]
     Active Substance: DAPTOMYCIN
     Indication: CYTOKINE RELEASE SYNDROME
     Dosage: 500 MG, QD
     Dates: start: 20200503, end: 20200506
  11. MEROPENEM. [Concomitant]
     Active Substance: MEROPENEM
     Indication: PYREXIA
  12. ACICLOVIR [Concomitant]
     Active Substance: ACYCLOVIR
     Dosage: 400 MG, TID
     Dates: start: 20200429
  13. KEPPRA [Concomitant]
     Active Substance: LEVETIRACETAM
     Dosage: 750 MG, BID
     Dates: start: 20200424
  14. MEROPENEM. [Concomitant]
     Active Substance: MEROPENEM
     Indication: CYTOKINE RELEASE SYNDROME
     Dosage: 1 GR TID
     Dates: start: 20200505, end: 20200513
  15. OMEPRAZOLE. [Concomitant]
     Active Substance: OMEPRAZOLE
     Dosage: 40 MG
     Dates: start: 20200429
  16. LASIX [Concomitant]
     Active Substance: FUROSEMIDE
     Dosage: 125 MG
     Dates: start: 20200504, end: 20200511
  17. DEXAMETHASONE. [Suspect]
     Active Substance: DEXAMETHASONE
     Dosage: 10 MG, BID
     Route: 042
     Dates: start: 20200520, end: 20200524

REACTIONS (5)
  - Neurotoxicity [Recovered/Resolved]
  - Cytokine release syndrome [Recovered/Resolved]
  - Diffuse large B-cell lymphoma [Fatal]
  - Febrile neutropenia [Unknown]
  - Thrombocytopenia [Unknown]

NARRATIVE: CASE EVENT DATE: 20200507
